FAERS Safety Report 18537045 (Version 1)
Quarter: 2020Q4

REPORT INFORMATION
  Report Type: Spontaneous
  Country: US (occurrence: US)
  Receive Date: 20201123
  Receipt Date: 20201123
  Transmission Date: 20210114
  Serious: No
  Sender: FDA-Public Use
  Company Number: US-PERRIGO-19US015297

PATIENT
  Age: 12 Year
  Sex: Female
  Weight: 58.96 kg

DRUGS (2)
  1. POLYETHYLENE GLYCOL 3350. [Suspect]
     Active Substance: POLYETHYLENE GLYCOL 3350
     Indication: BOWEL PREPARATION
     Dosage: UNKNOWN, OVER 8 HOURS
     Route: 048
     Dates: start: 20191115, end: 20191115
  2. POLYETHYLENE GLYCOL 3350. [Suspect]
     Active Substance: POLYETHYLENE GLYCOL 3350
     Indication: CONSTIPATION
     Dosage: 17 G, QD
     Route: 048
     Dates: start: 20191116

REACTIONS (4)
  - Product administered to patient of inappropriate age [Not Recovered/Not Resolved]
  - Off label use [Recovered/Resolved]
  - Incorrect product administration duration [Not Recovered/Not Resolved]
  - Overdose [Recovered/Resolved]

NARRATIVE: CASE EVENT DATE: 20191115
